FAERS Safety Report 10557122 (Version 2)
Quarter: 2014Q4

REPORT INFORMATION
  Report Type: Spontaneous
  Country: US (occurrence: US)
  Receive Date: 20141031
  Receipt Date: 20141031
  Transmission Date: 20150529
  Serious: Yes (Hospitalization, Other)
  Sender: FDA-Public Use
  Company Number: US-ABBVIE-14K-163-1292628-00

PATIENT
  Sex: Male
  Weight: 88.53 kg

DRUGS (9)
  1. LOMOTIL [Concomitant]
     Active Substance: ATROPINE SULFATE\DIPHENOXYLATE HYDROCHLORIDE
     Indication: PRODUCT USED FOR UNKNOWN INDICATION
  2. HUMIRA [Suspect]
     Active Substance: ADALIMUMAB
     Route: 065
     Dates: start: 2010, end: 201409
  3. SALAZINE [Concomitant]
     Indication: PRODUCT USED FOR UNKNOWN INDICATION
  4. HUMIRA [Suspect]
     Active Substance: ADALIMUMAB
     Indication: CROHN^S DISEASE
     Route: 065
     Dates: start: 2006, end: 2010
  5. HUMIRA [Suspect]
     Active Substance: ADALIMUMAB
     Indication: CROHN^S DISEASE
     Dosage: 3 WEEKS AFTER DISCONTINUATION OF SYRINGE
     Route: 065
     Dates: start: 20141004, end: 20141004
  6. UNKNOWN BLOOD PRESSURE MEDICATION [Concomitant]
     Active Substance: UNSPECIFIED INGREDIENT
     Indication: PRODUCT USED FOR UNKNOWN INDICATION
  7. HUMIRA [Suspect]
     Active Substance: ADALIMUMAB
     Route: 065
     Dates: start: 20141011
  8. CALCIUM [Concomitant]
     Active Substance: CALCIUM
     Indication: PRODUCT USED FOR UNKNOWN INDICATION
  9. MORPHINE [Concomitant]
     Active Substance: MORPHINE
     Indication: PRODUCT USED FOR UNKNOWN INDICATION

REACTIONS (13)
  - Lymphoma [Not Recovered/Not Resolved]
  - Splenomegaly [Unknown]
  - Meniscus injury [Recovered/Resolved]
  - Abdominal pain [Not Recovered/Not Resolved]
  - Crohn^s disease [Recovered/Resolved]
  - Blood count abnormal [Not Recovered/Not Resolved]
  - Constipation [Recovered/Resolved]
  - White blood cell count increased [Unknown]
  - Abdominal distension [Recovered/Resolved]
  - Large intestine benign neoplasm [Unknown]
  - Blood creatinine increased [Unknown]
  - Weight decreased [Not Recovered/Not Resolved]
  - Oesophageal mass [Not Recovered/Not Resolved]

NARRATIVE: CASE EVENT DATE: 2010
